FAERS Safety Report 21637750 (Version 2)
Quarter: 2022Q4

REPORT INFORMATION
  Report Type: Spontaneous
  Country: KR (occurrence: KR)
  Receive Date: 20221124
  Receipt Date: 20221208
  Transmission Date: 20230112
  Serious: Yes (Death, Hospitalization, Other)
  Sender: FDA-Public Use
  Company Number: KR-SA-2022SA479762

PATIENT
  Age: 67 Year
  Sex: Male
  Weight: 72 kg

DRUGS (28)
  1. OXALIPLATIN [Suspect]
     Active Substance: OXALIPLATIN
     Indication: Colorectal cancer
     Dosage: 159 MG, 1X
     Route: 041
     Dates: start: 20220816, end: 20220816
  2. OXALIPLATIN [Suspect]
     Active Substance: OXALIPLATIN
     Dosage: 159 MG, 1X
     Route: 041
     Dates: start: 20220830, end: 20220830
  3. OXALIPLATIN [Suspect]
     Active Substance: OXALIPLATIN
     Dosage: 159 MG, 1X
     Route: 041
     Dates: start: 20220914, end: 20220914
  4. OXALIPLATIN [Suspect]
     Active Substance: OXALIPLATIN
     Dosage: 121.55 MG, 1X
     Route: 041
     Dates: start: 20221004, end: 20221004
  5. BEVACIZUMAB [Suspect]
     Active Substance: BEVACIZUMAB
     Indication: Colorectal cancer
     Dosage: 373 MG, 1X
     Route: 041
     Dates: start: 20220816, end: 20220816
  6. BEVACIZUMAB [Suspect]
     Active Substance: BEVACIZUMAB
     Dosage: 373 MG, 1X
     Route: 041
     Dates: start: 20220830, end: 20220830
  7. BEVACIZUMAB [Suspect]
     Active Substance: BEVACIZUMAB
     Dosage: 373 MG, 1X
     Route: 041
     Dates: start: 20220914, end: 20220914
  8. BEVACIZUMAB [Suspect]
     Active Substance: BEVACIZUMAB
     Dosage: 372.5 MG, 1X
     Route: 041
     Dates: start: 20221004, end: 20221004
  9. FLUOROURACIL [Suspect]
     Active Substance: FLUOROURACIL
     Indication: Colorectal cancer
     Dosage: 748 MG, 1X
     Route: 040
     Dates: start: 20220816, end: 20220816
  10. FLUOROURACIL [Suspect]
     Active Substance: FLUOROURACIL
     Dosage: 4488 MG, 1X
     Route: 041
     Dates: start: 20220816, end: 20220816
  11. FLUOROURACIL [Suspect]
     Active Substance: FLUOROURACIL
     Dosage: 748 MG, 1X
     Route: 040
     Dates: start: 20220830, end: 20220830
  12. FLUOROURACIL [Suspect]
     Active Substance: FLUOROURACIL
     Dosage: 4488 MG, 1X
     Route: 041
     Dates: start: 20220830, end: 20220830
  13. FLUOROURACIL [Suspect]
     Active Substance: FLUOROURACIL
     Dosage: 748 MG, 1X
     Route: 040
     Dates: start: 20220914, end: 20220914
  14. FLUOROURACIL [Suspect]
     Active Substance: FLUOROURACIL
     Dosage: 4488 MG, 1X
     Route: 041
     Dates: start: 20220914, end: 20220914
  15. FLUOROURACIL [Suspect]
     Active Substance: FLUOROURACIL
     Dosage: 598.4 MG, 1X
     Route: 040
     Dates: start: 20221004, end: 20221004
  16. FLUOROURACIL [Suspect]
     Active Substance: FLUOROURACIL
     Dosage: 3590.4 MG, 1X
     Route: 041
     Dates: start: 20221004, end: 20221004
  17. LEUCOVORIN [Suspect]
     Active Substance: LEUCOVORIN
     Indication: Colorectal cancer
     Dosage: 400 MG, 1X
     Route: 041
     Dates: start: 20220816, end: 20220816
  18. LEUCOVORIN [Suspect]
     Active Substance: LEUCOVORIN
     Dosage: 400 MG, 1X
     Route: 041
     Dates: start: 20220830, end: 20220830
  19. LEUCOVORIN [Suspect]
     Active Substance: LEUCOVORIN
     Dosage: 400 MG, 1X
     Route: 041
     Dates: start: 20220914, end: 20220914
  20. LEUCOVORIN [Suspect]
     Active Substance: LEUCOVORIN
     Dosage: 400 MG, 1X
     Route: 041
     Dates: start: 20221004, end: 20221004
  21. ETRUMADENANT [Suspect]
     Active Substance: ETRUMADENANT
     Indication: Colorectal cancer
     Dosage: 150 MG, QD
     Route: 041
  22. ZIMBERELIMAB [Suspect]
     Active Substance: ZIMBERELIMAB
     Indication: Colorectal cancer
     Dosage: 480 MG, 1X
     Route: 041
     Dates: start: 20220816, end: 20220816
  23. ZIMBERELIMAB [Suspect]
     Active Substance: ZIMBERELIMAB
     Dosage: 480 MG, 1X
     Route: 041
     Dates: start: 20220914, end: 20220914
  24. PALONOSETRON [Concomitant]
     Active Substance: PALONOSETRON
     Dosage: UNK
     Dates: start: 20220816, end: 20221004
  25. ACETAMINOPHEN [Concomitant]
     Active Substance: ACETAMINOPHEN
     Dosage: UNK
     Dates: start: 20220816, end: 20221004
  26. CHLORPHENIRAMINE MALEATE [Concomitant]
     Active Substance: CHLORPHENIRAMINE MALEATE
     Dosage: UNK
     Dates: start: 20220816, end: 20221004
  27. AMLODIPINE [Concomitant]
     Active Substance: AMLODIPINE BESYLATE
     Indication: Hypertension
  28. FILGRASTIM [Concomitant]
     Active Substance: FILGRASTIM
     Dosage: UNK
     Dates: start: 20220928, end: 20220928

REACTIONS (4)
  - Acute myocardial infarction [Fatal]
  - Dizziness [Fatal]
  - Circulatory collapse [Fatal]
  - Vomiting [Fatal]

NARRATIVE: CASE EVENT DATE: 20221004
